FAERS Safety Report 4565382-9 (Version None)
Quarter: 2005Q1

REPORT INFORMATION
  Report Type: 
  Country: None (occurrence: None)
  Receive Date: 20050126
  Receipt Date: 20050110
  Transmission Date: 20050727
  Serious: Yes (Other)
  Sender: FDA-Public Use
  Company Number: B0363802A

PATIENT
  Age: 43 Year
  Sex: Female

DRUGS (1)
  1. IMITREX [Suspect]
     Indication: HEADACHE
     Dosage: 25 MG/PER DAY/ORAL
     Route: 048

REACTIONS (5)
  - CAROTID ARTERY DISEASE [None]
  - CEREBROVASCULAR SPASM [None]
  - HEMIPLEGIA [None]
  - VASOSPASM [None]
  - VISUAL FIELD DEFECT [None]
